FAERS Safety Report 17271927 (Version 1)
Quarter: 2020Q1

REPORT INFORMATION
  Report Type: Spontaneous
  Country: US (occurrence: US)
  Receive Date: 20200115
  Receipt Date: 20200115
  Transmission Date: 20200409
  Serious: No
  Sender: FDA-Public Use
  Company Number: US-VISTAPHARM, INC.-VER201908-000739

PATIENT
  Sex: Male

DRUGS (7)
  1. BOTOX [Suspect]
     Active Substance: ONABOTULINUMTOXINA
     Indication: POST HERPETIC NEURALGIA
     Dosage: UNKNOWN
  2. MORPHINE [Suspect]
     Active Substance: MORPHINE
     Indication: POST HERPETIC NEURALGIA
     Dosage: UNKNOWN
  3. NUCYNTA [Suspect]
     Active Substance: TAPENTADOL HYDROCHLORIDE
     Indication: POST HERPETIC NEURALGIA
     Dosage: UNKNOWN
  4. GABAPENTIN. [Suspect]
     Active Substance: GABAPENTIN
     Indication: POST HERPETIC NEURALGIA
     Dosage: UNKNOWN
  5. LYRICA [Suspect]
     Active Substance: PREGABALIN
     Indication: POST HERPETIC NEURALGIA
     Dosage: UNKNOWN
  6. METHADONE [Suspect]
     Active Substance: METHADONE HYDROCHLORIDE
     Indication: POST HERPETIC NEURALGIA
     Dosage: UNKNOWN
  7. NORCO [Suspect]
     Active Substance: ACETAMINOPHEN\HYDROCODONE BITARTRATE
     Indication: POST HERPETIC NEURALGIA
     Dosage: UNKNOWN

REACTIONS (1)
  - Drug ineffective [Unknown]
